FAERS Safety Report 23296896 (Version 1)
Quarter: 2023Q4

REPORT INFORMATION
  Report Type: Report from Study
  Country: EG (occurrence: EG)
  Receive Date: 20231214
  Receipt Date: 20231214
  Transmission Date: 20240109
  Serious: Yes (Other)
  Sender: FDA-Public Use
  Company Number: EG-SANDOZ-SDZ2023EG067760

PATIENT
  Age: 7 Year
  Sex: Female

DRUGS (3)
  1. OMNITROPE [Suspect]
     Active Substance: SOMATROPIN
     Indication: Growth hormone deficiency
     Dosage: 1 MG/DAY
     Route: 058
     Dates: start: 202103
  2. CALCIUM [Concomitant]
     Active Substance: CALCIUM
     Indication: Supplementation therapy
     Dosage: UNK UNK, QD
     Route: 048
  3. VIDROP [Concomitant]
     Indication: Supplementation therapy
     Dosage: 10 DROP, QD
     Route: 048

REACTIONS (9)
  - Therapeutic product effect incomplete [Not Recovered/Not Resolved]
  - Dermatitis allergic [Recovered/Resolved]
  - Product dose omission issue [Recovered/Resolved]
  - Expired device used [Recovered/Resolved]
  - Wrong technique in product usage process [Recovered/Resolved]
  - Multiple use of single-use product [Recovered/Resolved]
  - Product preparation error [Recovered/Resolved]
  - Product storage error [Recovered/Resolved]
  - Product availability issue [Not Recovered/Not Resolved]

NARRATIVE: CASE EVENT DATE: 20230301
